FAERS Safety Report 26148764 (Version 1)
Quarter: 2025Q4

REPORT INFORMATION
  Report Type: Report from Study
  Country: GB (occurrence: GB)
  Receive Date: 20251212
  Receipt Date: 20251212
  Transmission Date: 20260117
  Serious: Yes (Other)
  Sender: ABBVIE
  Company Number: GB-ABBVIE-6583389

PATIENT
  Sex: Female

DRUGS (1)
  1. SKYRIZI [Suspect]
     Active Substance: RISANKIZUMAB-RZAA
     Indication: Psoriasis
     Dosage: FORM STRENGTH-SKYRIZI 150MG/1.0ML PFP 1?FOA-SOLUTION FOR INJECTION IN PRE-FILLED PEN
     Route: 058

REACTIONS (1)
  - Skin cancer [Unknown]
